FAERS Safety Report 4721749-7 (Version None)
Quarter: 2005Q3

REPORT INFORMATION
  Report Type: 
  Country: None (occurrence: None)
  Receive Date: 20050721
  Receipt Date: 20050328
  Transmission Date: 20060218
  Serious: No
  Sender: FDA-Public Use
  Company Number: US-BRISTOL-MYERS SQUIBB COMPANY-12912812

PATIENT
  Age: 46 Year
  Sex: Female
  Weight: 66 kg

DRUGS (4)
  1. COUMADIN [Suspect]
     Indication: CATHETER RELATED COMPLICATION
     Route: 048
     Dates: start: 20050301
  2. LOVENOX [Concomitant]
  3. NEXIUM [Concomitant]
  4. CHEMOTHERAPY [Concomitant]

REACTIONS (1)
  - INTERNATIONAL NORMALISED RATIO DECREASED [None]
